FAERS Safety Report 4896329-3 (Version None)
Quarter: 2006Q1

REPORT INFORMATION
  Report Type: 
  Country: None (occurrence: None)
  Receive Date: 20060126
  Receipt Date: 20060120
  Transmission Date: 20060701
  Serious: Yes (Other)
  Sender: FDA-Public Use
  Company Number: 2006-00245

PATIENT
  Age: 45 Year
  Sex: Female

DRUGS (1)
  1. FERRLECIT [Suspect]
     Indication: IRON DEFICIENCY ANAEMIA
     Dosage: 62.5 MG/250ML, DAILY, INTRAVENOUS
     Route: 042
     Dates: start: 20060101

REACTIONS (4)
  - ASTHENIA [None]
  - EXTRASYSTOLES [None]
  - HYPOKALAEMIA [None]
  - TACHYCARDIA [None]
